FAERS Safety Report 21375673 (Version 2)
Quarter: 2025Q1

REPORT INFORMATION
  Report Type: Spontaneous
  Country: US (occurrence: US)
  Receive Date: 20220926
  Receipt Date: 20250130
  Transmission Date: 20250409
  Serious: No
  Sender: GLAXOSMITHKLINE
  Company Number: US-GSK-US2022AMR135442

PATIENT
  Sex: Female

DRUGS (2)
  1. BENLYSTA [Suspect]
     Active Substance: BELIMUMAB
     Indication: Product used for unknown indication
  2. BENLYSTA [Suspect]
     Active Substance: BELIMUMAB
     Indication: Product used for unknown indication

REACTIONS (5)
  - Wrong technique in device usage process [Unknown]
  - Exposure via skin contact [Unknown]
  - Accidental exposure to product [Unknown]
  - Drug effect less than expected [Unknown]
  - Product dose omission issue [Unknown]
